FAERS Safety Report 17996882 (Version 1)
Quarter: 2020Q3

REPORT INFORMATION
  Report Type: Spontaneous
  Country: US (occurrence: US)
  Receive Date: 20200708
  Receipt Date: 20200708
  Transmission Date: 20201103
  Serious: Yes (Other)
  Sender: FDA-Public Use
  Company Number: US-NAPPMUNDI-USA-2020-0156770

PATIENT

DRUGS (1)
  1. OXYCODONE HYDROCHLORIDE (SIMILAR TO NDA 22?272) [Suspect]
     Active Substance: OXYCODONE HYDROCHLORIDE
     Indication: PRODUCT USED FOR UNKNOWN INDICATION
     Dosage: UNK
     Route: 048

REACTIONS (7)
  - Hydrocephalus [Unknown]
  - Infection [Unknown]
  - Gait disturbance [Not Recovered/Not Resolved]
  - Abscess drainage [Unknown]
  - Cognitive disorder [Not Recovered/Not Resolved]
  - Knee arthroplasty [Unknown]
  - Renal disorder [Unknown]
